FAERS Safety Report 7412583-8 (Version None)
Quarter: 2011Q2

REPORT INFORMATION
  Report Type: 
  Country: None (occurrence: None)
  Receive Date: 20110404
  Receipt Date: 20110322
  Transmission Date: 20111010
  Serious: Yes (Death)
  Sender: FDA-Public Use
  Company Number: MIN-00714

PATIENT
  Age: 91 Year
  Sex: Female

DRUGS (4)
  1. MINOCYCLINE, 100MG [Suspect]
     Indication: MACULAR DEGENERATION
     Dosage: 100MG DAILY, ORAL
     Route: 048
  2. REDUCED-FLUENCE (25MJ, CM2) PDT WITH VERTEPORFIN [Suspect]
     Indication: MACULAR DEGENERATION
     Dosage: SINGLE CYCLE
  3. DEXAMETHASONE [Suspect]
     Indication: MACULAR DEGENERATION
     Dosage: 200UG, INTRAVITREAL INJECTION AT BASELINE
  4. RANIBIZUMAB 0.3MG/0.05ML [Suspect]
     Indication: MACULAR DEGENERATION
     Dosage: INTRAVITREAL INJECTION AT BASELINE AND MONTH 2

REACTIONS (1)
  - EXTRADURAL HAEMATOMA [None]
